FAERS Safety Report 17370411 (Version 2)
Quarter: 2020Q1

REPORT INFORMATION
  Report Type: Spontaneous
  Country: FR (occurrence: FR)
  Receive Date: 20200205
  Receipt Date: 20200206
  Transmission Date: 20200409
  Serious: Yes (Hospitalization, Other)
  Sender: FDA-Public Use
  Company Number: FR-PFIZER INC-2020047012

PATIENT
  Age: 84 Year
  Sex: Female

DRUGS (8)
  1. ATORVASTATIN [Concomitant]
     Active Substance: ATORVASTATIN
     Indication: ATRIOVENTRICULAR BLOCK
     Dosage: 20 MG, 1X/DAY
     Route: 048
  2. FUROSEMIDE. [Suspect]
     Active Substance: FUROSEMIDE
     Indication: CARDIAC ASSISTANCE DEVICE USER
     Dosage: 80 MG, 1X/DAY
     Route: 048
     Dates: end: 20200101
  3. PANTOPRAZOLE [Concomitant]
     Active Substance: PANTOPRAZOLE
     Dosage: 40 MG, 1X/DAY
     Route: 048
     Dates: end: 20191231
  4. BISOPROLOL FUMARATE. [Suspect]
     Active Substance: BISOPROLOL FUMARATE
     Indication: ATRIOVENTRICULAR BLOCK
     Dosage: 10 MG, 1X/DAY
     Route: 048
     Dates: end: 20191231
  5. KALEORID [Concomitant]
     Active Substance: POTASSIUM CHLORIDE
     Dosage: UNK
     Route: 048
     Dates: end: 20191231
  6. SPIRONOLACTONE. [Suspect]
     Active Substance: SPIRONOLACTONE
     Indication: ATRIOVENTRICULAR BLOCK
     Dosage: 25 MG, 1X/DAY
     Route: 048
     Dates: end: 20191231
  7. SERESTA [Concomitant]
     Active Substance: OXAZEPAM
     Dosage: 10 MG (1 DF), ONCE DAILY
     Route: 048
     Dates: end: 20191231
  8. RAMIPRIL. [Suspect]
     Active Substance: RAMIPRIL
     Indication: CARDIAC ASSISTANCE DEVICE USER
     Dosage: 5 MG, 1X/DAY
     Route: 048
     Dates: end: 20191231

REACTIONS (2)
  - Acute kidney injury [Recovering/Resolving]
  - Hypovolaemic shock [Recovered/Resolved]

NARRATIVE: CASE EVENT DATE: 20191231
